FAERS Safety Report 10073412 (Version 3)
Quarter: 2014Q2

REPORT INFORMATION
  Report Type: Report from Study
  Country: US (occurrence: US)
  Receive Date: 20140411
  Receipt Date: 20140527
  Transmission Date: 20141212
  Serious: Yes (Hospitalization, Other)
  Sender: FDA-Public Use
  Company Number: US-ALEXION-A201400987

PATIENT
  Sex: 0

DRUGS (5)
  1. SOLIRIS [Suspect]
     Indication: HAEMOLYTIC URAEMIC SYNDROME
     Dosage: 300 MG, EVERY 28 DAYS
     Route: 042
     Dates: start: 20130928
  2. SOLIRIS [Suspect]
     Dosage: 300 MG, Q2W
     Route: 042
     Dates: start: 20130928
  3. CAPTOPRIL [Concomitant]
     Indication: HYPERTENSION
     Dosage: 0.7 ML, TID
     Route: 065
     Dates: start: 20130810
  4. FERROUS SULFATE [Concomitant]
     Indication: MINERAL SUPPLEMENTATION
     Dosage: 75 ML, BID
     Route: 048
     Dates: start: 20130810
  5. PROPRANOLOL [Concomitant]
     Indication: HYPERTENSION
     Dosage: 0.9 MG, TID
     Route: 065
     Dates: start: 20130810

REACTIONS (3)
  - Hypertensive crisis [Not Recovered/Not Resolved]
  - Blood pressure systolic increased [Unknown]
  - Incorrect dosage administered [Unknown]
